FAERS Safety Report 25337584 (Version 1)
Quarter: 2025Q2

REPORT INFORMATION
  Report Type: Spontaneous
  Country: KR (occurrence: KR)
  Receive Date: 20250520
  Receipt Date: 20250520
  Transmission Date: 20250716
  Serious: Yes (Hospitalization)
  Sender: ELI LILLY AND COMPANY
  Company Number: KR-ELI_LILLY_AND_COMPANY-KR202505008290

PATIENT
  Age: 18 Year
  Sex: Female

DRUGS (4)
  1. PROZAC [Suspect]
     Active Substance: FLUOXETINE HYDROCHLORIDE
     Indication: Borderline personality disorder
     Dosage: 20 MG, DAILY
     Route: 065
     Dates: start: 20220211
  2. RISPERIDONE [Suspect]
     Active Substance: RISPERIDONE
     Indication: Borderline personality disorder
     Dosage: 0.5 MG, DAILY
     Route: 065
     Dates: start: 20220211
  3. BUPROPION HYDROCHLORIDE [Suspect]
     Active Substance: BUPROPION HYDROCHLORIDE
     Indication: Borderline personality disorder
     Dosage: 150 MG, DAILY
     Route: 065
     Dates: start: 20220211
  4. ALPRAZOLAM [Suspect]
     Active Substance: ALPRAZOLAM
     Indication: Borderline personality disorder
     Dosage: 0.25 MG, DAILY
     Route: 065
     Dates: start: 20220211

REACTIONS (2)
  - Depressed level of consciousness [Recovered/Resolved]
  - Off label use [Unknown]

NARRATIVE: CASE EVENT DATE: 20220805
